FAERS Safety Report 5580114-3 (Version None)
Quarter: 2007Q4

REPORT INFORMATION
  Report Type: 
  Country: None (occurrence: None)
  Receive Date: 20071228
  Receipt Date: 20071217
  Transmission Date: 20080405
  Serious: Yes (Other)
  Sender: FDA-Public Use
  Company Number: 2007-04097

PATIENT
  Age: 56 Year
  Sex: Male
  Weight: 52 kg

DRUGS (5)
  1. VELCADE [Suspect]
     Indication: MULTIPLE MYELOMA
     Dosage: 1.90 MG, INTRAVENOUS
     Route: 042
     Dates: start: 20071022, end: 20071122
  2. DEXAMETHASONE TAB [Concomitant]
  3. DIFLUCAN [Concomitant]
  4. ZANTAC 150 [Concomitant]
  5. SELBEX (TEPRENONE) [Concomitant]

REACTIONS (1)
  - PLATELET COUNT DECREASED [None]
